FAERS Safety Report 17118431 (Version 2)
Quarter: 2019Q4

REPORT INFORMATION
  Report Type: Spontaneous
  Country: US (occurrence: US)
  Receive Date: 20191205
  Receipt Date: 20191205
  Transmission Date: 20200122
  Serious: No
  Sender: FDA-Public Use
  Company Number: US-JNJFOC-20191203597

PATIENT
  Sex: Female

DRUGS (1)
  1. TYLENOL [Suspect]
     Active Substance: ACETAMINOPHEN
     Indication: RHEUMATOID ARTHRITIS
     Dosage: 8 CAPLETS WHEN SHE WAS IN EXTREME PAIN, LAST YEAR 1 PILL TWICE A DAY
     Route: 048

REACTIONS (2)
  - Gastrointestinal disorder [Unknown]
  - Incorrect dose administered [Unknown]
